FAERS Safety Report 13792708 (Version 1)
Quarter: 2017Q3

REPORT INFORMATION
  Report Type: Spontaneous
  Country: IT (occurrence: IT)
  Receive Date: 20170726
  Receipt Date: 20170726
  Transmission Date: 20171127
  Serious: Yes (Other)
  Sender: FDA-Public Use
  Company Number: IT-ADIENNEP-2017AD000234

PATIENT
  Age: 3 Year
  Sex: Male
  Weight: 17 kg

DRUGS (1)
  1. THIOTEPA. [Suspect]
     Active Substance: THIOTEPA
     Indication: CHEMOTHERAPY
     Dosage: 106.5 MG DAILY
     Route: 042
     Dates: start: 20170719, end: 20170719

REACTIONS (4)
  - Lip oedema [Recovered/Resolved]
  - Agitation [Recovered/Resolved]
  - Bronchospasm [Recovered/Resolved]
  - Respiratory fatigue [Recovered/Resolved]

NARRATIVE: CASE EVENT DATE: 20170719
